FAERS Safety Report 9028850 (Version 1)
Quarter: 2013Q1

REPORT INFORMATION
  Report Type: Report from Study
  Country: CA (occurrence: CA)
  Receive Date: 20130124
  Receipt Date: 20130124
  Transmission Date: 20140127
  Serious: Yes (Other)
  Sender: FDA-Public Use
  Company Number: CA-JNJFOC-20130107734

PATIENT
  Sex: Male
  Weight: 108.86 kg

DRUGS (1)
  1. REMICADE [Suspect]
     Indication: CROHN^S DISEASE
     Route: 042

REACTIONS (3)
  - Rectal haemorrhage [Unknown]
  - Crohn^s disease [Unknown]
  - Proctalgia [Unknown]
